FAERS Safety Report 5090937-5 (Version None)
Quarter: 2006Q3

REPORT INFORMATION
  Report Type: 
  Country: None (occurrence: None)
  Receive Date: 20060823
  Receipt Date: 20060810
  Transmission Date: 20061208
  Serious: Yes (Death, Hospitalization)
  Sender: FDA-Public Use
  Company Number: CLOF-10202

PATIENT
  Age: 66 Year
  Sex: Male

DRUGS (5)
  1. CLOFARABINE [Suspect]
     Indication: ACUTE MYELOID LEUKAEMIA
     Dosage: 30 MG/M2 QD X 5  IV
     Route: 042
     Dates: start: 20040601, end: 20040605
  2. CLOFARABINE [Suspect]
     Indication: ACUTE MYELOID LEUKAEMIA
     Dosage: 30 MG/M2 QD X 5 IV
     Route: 042
     Dates: start: 20040623, end: 20040627
  3. ARA-C [Suspect]
     Indication: ACUTE MYELOID LEUKAEMIA
     Dosage: 100 MG/M2 QD IV
     Route: 042
     Dates: start: 20040601, end: 20040607
  4. ARA-C [Suspect]
     Indication: ACUTE MYELOID LEUKAEMIA
     Dosage: 100 MG/M2 QD X 5 IV
     Route: 042
     Dates: start: 20040623, end: 20040627
  5. BROAD SPECTRUM ANTIBIOTICS [Concomitant]

REACTIONS (18)
  - BONE MARROW FAILURE [None]
  - DRUG TOXICITY [None]
  - HYPERTONIA [None]
  - HYPOTENSION [None]
  - INFECTION [None]
  - LOSS OF CONSCIOUSNESS [None]
  - METABOLIC ACIDOSIS [None]
  - NEPHROPATHY TOXIC [None]
  - NEUTROPENIA [None]
  - PAIN IN EXTREMITY [None]
  - PANCYTOPENIA [None]
  - PERIPHERAL ISCHAEMIA [None]
  - PULSE ABSENT [None]
  - PYREXIA [None]
  - RENAL FAILURE [None]
  - RENAL FAILURE ACUTE [None]
  - SEPSIS [None]
  - SYNCOPE [None]
